FAERS Safety Report 4434178-0 (Version None)
Quarter: 2004Q3

REPORT INFORMATION
  Report Type: 
  Country: None (occurrence: None)
  Receive Date: 20040825
  Receipt Date: 20040812
  Transmission Date: 20050211
  Serious: Yes (Hospitalization)
  Sender: FDA-Public Use
  Company Number: S04-BRA-03679-01

PATIENT
  Age: 72 Year
  Sex: Male

DRUGS (2)
  1. MEMANTINE HCL [Suspect]
     Indication: DEMENTIA ALZHEIMER'S TYPE
     Dosage: 10 MG QD PO
     Route: 048
     Dates: start: 20040428, end: 20040510
  2. EBIXA (MEMANINE) [Suspect]
     Indication: DEMENTIA ALZHEIMER'S TYPE
     Dosage: 5 MG QD PO
     Route: 048
     Dates: start: 20040419, end: 20040427

REACTIONS (3)
  - HALLUCINATION [None]
  - HEMIPLEGIA [None]
  - THROMBOTIC STROKE [None]
